FAERS Safety Report 18215663 (Version 1)
Quarter: 2020Q3

REPORT INFORMATION
  Report Type: Spontaneous
  Country: FR (occurrence: FR)
  Receive Date: 20200901
  Receipt Date: 20200901
  Transmission Date: 20201103
  Serious: Yes (Other)
  Sender: FDA-Public Use
  Company Number: FR-SUN PHARMACEUTICAL INDUSTRIES LTD-2020RR-258529

PATIENT
  Age: 58 Year
  Sex: Female

DRUGS (6)
  1. SUMATRIPTAN. [Suspect]
     Active Substance: SUMATRIPTAN
     Indication: CYCLIC VOMITING SYNDROME
     Dosage: UNK
     Route: 065
  2. PROPRANOLOL [Suspect]
     Active Substance: PROPRANOLOL HYDROCHLORIDE
     Indication: CYCLIC VOMITING SYNDROME
     Dosage: 10 MILLIGRAM, DAILY
     Route: 065
  3. COENZYME Q10 [Suspect]
     Active Substance: DIETARY SUPPLEMENT\UBIDECARENONE
     Indication: CYCLIC VOMITING SYNDROME
     Dosage: UNK
     Route: 065
  4. AMITRIPTYLINE [Suspect]
     Active Substance: AMITRIPTYLINE
     Indication: CYCLIC VOMITING SYNDROME
     Dosage: 5 MILLIGRAM, DAILY
     Route: 065
  5. NEBIVOLOL. [Suspect]
     Active Substance: NEBIVOLOL
     Indication: CYCLIC VOMITING SYNDROME
     Dosage: 5 MILLIGRAM, DAILY
     Route: 065
  6. L?CARNITINE [Suspect]
     Active Substance: LEVOCARNITINE
     Indication: CYCLIC VOMITING SYNDROME
     Dosage: UNK
     Route: 065

REACTIONS (3)
  - Drug ineffective [Unknown]
  - Drug intolerance [Unknown]
  - Therapeutic product effect incomplete [Unknown]
